FAERS Safety Report 14789599 (Version 1)
Quarter: 2018Q2

REPORT INFORMATION
  Report Type: Spontaneous
  Country: US (occurrence: US)
  Receive Date: 20180423
  Receipt Date: 20180423
  Transmission Date: 20180711
  Serious: No
  Sender: FDA-Public Use
  Company Number: US-TEVA-776733ACC

PATIENT
  Sex: Female

DRUGS (1)
  1. ZOLPIDEM TARTRATE. [Suspect]
     Active Substance: ZOLPIDEM TARTRATE
     Dosage: 10 MILLIGRAM DAILY; 10MG AT BED TIME
     Route: 065

REACTIONS (3)
  - Intentional product use issue [Unknown]
  - Drug effect variable [Unknown]
  - Wrong technique in product usage process [Unknown]
